FAERS Safety Report 18638686 (Version 1)
Quarter: 2020Q4

REPORT INFORMATION
  Report Type: Spontaneous
  Country: US (occurrence: US)
  Receive Date: 20201219
  Receipt Date: 20201219
  Transmission Date: 20210114
  Serious: Yes (Other)
  Sender: FDA-Public Use
  Company Number: US-AXELLIA-003579

PATIENT
  Age: 28 Year
  Sex: Female
  Weight: 58.7 kg

DRUGS (1)
  1. VANCOMYCIN FRESENIUS KABI [Suspect]
     Active Substance: VANCOMYCIN HYDROCHLORIDE
     Indication: BACTERAEMIA
     Dosage: STRENGTH:500MG
     Route: 042
     Dates: start: 20200515, end: 20200515

REACTIONS (4)
  - Flushing [Recovered/Resolved]
  - Tachycardia [Recovered/Resolved]
  - Hypoaesthesia oral [Recovered/Resolved]
  - Pruritus [Recovered/Resolved]

NARRATIVE: CASE EVENT DATE: 20200515
